FAERS Safety Report 7292839-2 (Version None)
Quarter: 2011Q1

REPORT INFORMATION
  Report Type: 
  Country: None (occurrence: None)
  Receive Date: 20110203
  Receipt Date: 20110119
  Transmission Date: 20110831
  Serious: Yes (Hospitalization)
  Sender: FDA-Public Use
  Company Number: 024943

PATIENT
  Sex: Female
  Weight: 57.6068 kg

DRUGS (1)
  1. CIMZIA [Suspect]
     Indication: CROHN'S DISEASE
     Dosage: SUBCUTANEOUS
     Route: 058
     Dates: start: 20100415

REACTIONS (5)
  - BLOOD PRESSURE SYSTOLIC INCREASED [None]
  - INTESTINAL OBSTRUCTION [None]
  - POST PROCEDURAL DIARRHOEA [None]
  - BLOOD PRESSURE DIASTOLIC INCREASED [None]
  - INTESTINAL STENOSIS [None]
